FAERS Safety Report 22006860 (Version 1)
Quarter: 2023Q1

REPORT INFORMATION
  Report Type: Spontaneous
  Country: AU (occurrence: AU)
  Receive Date: 20230217
  Receipt Date: 20230217
  Transmission Date: 20230418
  Serious: Yes (Other)
  Sender: FDA-Public Use
  Company Number: AU-AMGEN-AUSSP2022218501

PATIENT
  Age: 58 Year
  Sex: Male
  Weight: 62 kg

DRUGS (2)
  1. REPATHA [Suspect]
     Active Substance: EVOLOCUMAB
     Indication: Blood cholesterol abnormal
     Dosage: 140 MILLIGRAM
     Route: 065
  2. REPATHA [Suspect]
     Active Substance: EVOLOCUMAB
     Dosage: 140 MILLIGRAM
     Route: 065
     Dates: start: 20221201

REACTIONS (9)
  - Coronary artery occlusion [Unknown]
  - Angioedema [Unknown]
  - Injection site discomfort [Unknown]
  - Illness [Unknown]
  - Somnolence [Unknown]
  - Visual impairment [Unknown]
  - Muscle spasms [Unknown]
  - Blood pressure increased [Recovering/Resolving]
  - Headache [Unknown]
